FAERS Safety Report 21401031 (Version 1)
Quarter: 2022Q4

REPORT INFORMATION
  Report Type: Spontaneous
  Country: US (occurrence: None)
  Receive Date: 20221003
  Receipt Date: 20221003
  Transmission Date: 20230113
  Serious: Yes (Other)
  Sender: FDA-Public Use
  Company Number: 2022A327849

PATIENT
  Age: 27617 Day
  Sex: Female
  Weight: 68 kg

DRUGS (2)
  1. TAGRISSO [Suspect]
     Active Substance: OSIMERTINIB
     Indication: Lung neoplasm malignant
     Route: 048
     Dates: start: 202204
  2. TAGRISSO [Suspect]
     Active Substance: OSIMERTINIB
     Indication: Brain cancer metastatic
     Route: 048
     Dates: start: 202204

REACTIONS (2)
  - Malignant neoplasm progression [Not Recovered/Not Resolved]
  - Off label use [Unknown]

NARRATIVE: CASE EVENT DATE: 20220922
